FAERS Safety Report 8764885 (Version 2)
Quarter: 2012Q4

REPORT INFORMATION
  Report Type: 
  Country: US (occurrence: US)
  Receive Date: 20120901
  Receipt Date: 20120927
  Transmission Date: 20130627
  Serious: No
  Sender: FDA-Public Use
  Company Number: US-009507513-1208USA000280

PATIENT

DRUGS (2)
  1. ZOCOR [Suspect]
  2. SINGULAIR [Suspect]

REACTIONS (2)
  - Drug name confusion [Unknown]
  - Intercepted medication error [Unknown]
